FAERS Safety Report 17919744 (Version 3)
Quarter: 2020Q3

REPORT INFORMATION
  Report Type: Spontaneous
  Country: US (occurrence: US)
  Receive Date: 20200620
  Receipt Date: 20200723
  Transmission Date: 20201103
  Serious: No
  Sender: FDA-Public Use
  Company Number: US-HETERO-HET2020US00642

PATIENT
  Age: 68 Year
  Sex: Female
  Weight: 68 kg

DRUGS (2)
  1. TERAZOSIN [Concomitant]
     Active Substance: TERAZOSIN HYDROCHLORIDE
     Indication: BLOOD PRESSURE ABNORMAL
     Dosage: 2 MG
     Route: 065
  2. LOSARTAN. [Suspect]
     Active Substance: LOSARTAN
     Indication: BLOOD PRESSURE ABNORMAL
     Dosage: 50 MG, BID
     Route: 048
     Dates: start: 202003

REACTIONS (1)
  - Drug ineffective [Not Recovered/Not Resolved]

NARRATIVE: CASE EVENT DATE: 202003
